FAERS Safety Report 10599364 (Version 2)
Quarter: 2014Q4

REPORT INFORMATION
  Report Type: Spontaneous
  Country: JP (occurrence: JP)
  Receive Date: 20141121
  Receipt Date: 20141121
  Transmission Date: 20150529
  Serious: Yes (Hospitalization)
  Sender: FDA-Public Use
  Company Number: JP-GLAXOSMITHKLINE-B0947254A

PATIENT
  Sex: Female
  Weight: 2.41 kg

DRUGS (5)
  1. LAMIVUDINE. [Suspect]
     Active Substance: LAMIVUDINE
     Indication: HIV INFECTION
     Route: 064
  2. RETROVIR [Concomitant]
     Active Substance: ZIDOVUDINE
  3. ZIDOVUDINE. [Suspect]
     Active Substance: ZIDOVUDINE
     Indication: HIV INFECTION
     Route: 064
  4. RETROVIR [Suspect]
     Active Substance: ZIDOVUDINE
     Route: 064
  5. KALETRA [Suspect]
     Active Substance: LOPINAVIR\RITONAVIR
     Route: 064

REACTIONS (4)
  - Caesarean section [None]
  - Respiratory disorder neonatal [Recovered/Resolved]
  - Low birth weight baby [Unknown]
  - Foetal exposure during pregnancy [Unknown]
